FAERS Safety Report 9840690 (Version 1)
Quarter: 2013Q4

REPORT INFORMATION
  Report Type: Spontaneous
  Country: US (occurrence: None)
  Receive Date: 20131223
  Receipt Date: 20131223
  Transmission Date: 20140711
  Serious: No
  Sender: FDA-Public Use
  Company Number: 221085LEO

PATIENT
  Age: 49 Year
  Sex: Male

DRUGS (1)
  1. PICATO [Suspect]
     Indication: ACTINIC KERATOSIS
     Dosage: 150MCG (150MCG, 1 IN 1)
     Dates: start: 20130323

REACTIONS (1)
  - Application site vesicles [None]
